FAERS Safety Report 8510793-X (Version None)
Quarter: 2012Q3

REPORT INFORMATION
  Report Type: 
  Country: None (occurrence: None)
  Receive Date: 20120716
  Receipt Date: 20120710
  Transmission Date: 20120928
  Serious: No
  Sender: FDA-Public Use
  Company Number: US-PFIZER INC-2012166179

PATIENT
  Sex: Female
  Weight: 86.621 kg

DRUGS (1)
  1. LEVOXYL [Suspect]
     Indication: THYROID DISORDER
     Dosage: 112 UG, 1X/DAY
     Route: 048

REACTIONS (5)
  - DIZZINESS [None]
  - MALAISE [None]
  - FATIGUE [None]
  - MOOD ALTERED [None]
  - FEELING ABNORMAL [None]
